FAERS Safety Report 9729189 (Version 1)
Quarter: 2013Q4

REPORT INFORMATION
  Report Type: Spontaneous
  Country: US (occurrence: None)
  Receive Date: 20131203
  Receipt Date: 20131203
  Transmission Date: 20140711
  Serious: Yes (Hospitalization)
  Sender: FDA-Public Use
  Company Number: None

PATIENT
  Age: 70 Year
  Sex: Male
  Weight: 59 kg

DRUGS (3)
  1. BENDAMUSTINE HYDROCHLORIDE [Suspect]
  2. VELCADE (BORTEZOMIB) [Suspect]
  3. RITUXIMAB [Suspect]

REACTIONS (2)
  - Acute pulmonary oedema [None]
  - Fall [None]
